FAERS Safety Report 24422797 (Version 1)
Quarter: 2024Q4

REPORT INFORMATION
  Report Type: Spontaneous
  Country: US (occurrence: US)
  Receive Date: 20241010
  Receipt Date: 20241010
  Transmission Date: 20250115
  Serious: Yes (Hospitalization)
  Sender: MYLAN
  Company Number: US-MYLANLABS-2024M1092090

PATIENT
  Age: 56 Year
  Sex: Male

DRUGS (23)
  1. CLOZAPINE [Interacting]
     Active Substance: CLOZAPINE
     Indication: Schizoaffective disorder bipolar type
     Dosage: 325 MILLIGRAM, QD
     Route: 065
  2. CLOZAPINE [Interacting]
     Active Substance: CLOZAPINE
     Dosage: 350 MILLIGRAM, QD
     Route: 065
  3. CLOZAPINE [Interacting]
     Active Substance: CLOZAPINE
     Dosage: 500 MILLIGRAM, QD
     Route: 065
  4. CLOZAPINE [Interacting]
     Active Substance: CLOZAPINE
     Dosage: 550 MILLIGRAM, QD
     Route: 065
  5. OXCARBAZEPINE [Interacting]
     Active Substance: OXCARBAZEPINE
     Indication: Schizoaffective disorder bipolar type
     Dosage: INITIAL DOSE NOT STATED
     Route: 065
  6. OXCARBAZEPINE [Interacting]
     Active Substance: OXCARBAZEPINE
     Dosage: UNK, QD
     Route: 065
  7. OXCARBAZEPINE [Interacting]
     Active Substance: OXCARBAZEPINE
     Dosage: 1200 MILLIGRAM, QD
     Route: 065
  8. LORAZEPAM [Concomitant]
     Active Substance: LORAZEPAM
     Indication: Schizoaffective disorder bipolar type
     Dosage: INITIAL DOSE NOT STATED
     Route: 065
  9. LORAZEPAM [Concomitant]
     Active Substance: LORAZEPAM
     Dosage: 2 MILLIGRAM, QD
     Route: 065
  10. QUETIAPINE [Concomitant]
     Active Substance: QUETIAPINE
     Indication: Schizoaffective disorder bipolar type
     Dosage: INITIAL DOSE NOT STATED
     Route: 065
  11. QUETIAPINE [Concomitant]
     Active Substance: QUETIAPINE
     Dosage: 400 MILLIGRAM, QD
     Route: 065
  12. QUETIAPINE [Concomitant]
     Active Substance: QUETIAPINE
     Dosage: 650 MILLIGRAM, QD, DOSE INCREASED
     Route: 065
     Dates: start: 202302
  13. PALIPERIDONE [Concomitant]
     Active Substance: PALIPERIDONE
     Indication: Schizoaffective disorder bipolar type
     Dosage: 117 MILLIGRAM, Q28D
     Route: 030
  14. PALIPERIDONE [Concomitant]
     Active Substance: PALIPERIDONE
     Dosage: 234 MILLIGRAM, Q28D (DOSE INCREASED)
     Route: 030
     Dates: start: 2022
  15. PALIPERIDONE [Concomitant]
     Active Substance: PALIPERIDONE
     Dosage: 156 MILLIGRAM, Q28D
     Route: 030
  16. FLUVOXAMINE [Concomitant]
     Active Substance: FLUVOXAMINE
     Indication: Schizoaffective disorder bipolar type
     Dosage: INITIAL DOSE NOT STATED
     Route: 065
  17. FLUVOXAMINE [Concomitant]
     Active Substance: FLUVOXAMINE
     Dosage: 200 MILLIGRAM, QD
     Route: 065
  18. FLUVOXAMINE [Concomitant]
     Active Substance: FLUVOXAMINE
     Dosage: DOSE TAPERED
     Route: 065
  19. VENLAFAXINE [Concomitant]
     Active Substance: VENLAFAXINE HYDROCHLORIDE
     Indication: Depression
     Dosage: UNK
     Route: 065
  20. VENLAFAXINE [Concomitant]
     Active Substance: VENLAFAXINE HYDROCHLORIDE
     Indication: Anxiety
  21. HYDROXYZINE [Concomitant]
     Active Substance: HYDROXYZINE HYDROCHLORIDE
     Indication: Product used for unknown indication
     Dosage: UNK
     Route: 065
  22. MAGNESIUM HYDROXIDE [Concomitant]
     Active Substance: MAGNESIUM HYDROXIDE
     Indication: Product used for unknown indication
     Dosage: UNK
     Route: 065
  23. SENNA LEAF [Concomitant]
     Active Substance: SENNA LEAF
     Indication: Constipation
     Dosage: UNK
     Route: 065

REACTIONS (5)
  - Drug interaction [Unknown]
  - Drug level below therapeutic [Unknown]
  - Drooling [Unknown]
  - Sedation [Unknown]
  - Constipation [Unknown]
